FAERS Safety Report 6428578-7 (Version None)
Quarter: 2009Q4

REPORT INFORMATION
  Report Type: 
  Country: None (occurrence: None)
  Receive Date: 20091104
  Receipt Date: 20091104
  Transmission Date: 20100525
  Serious: Yes (Hospitalization)
  Sender: FDA-Public Use
  Company Number: None

PATIENT
  Age: 48 Year

DRUGS (1)
  1. FOSINOPRIL SODIUM [Suspect]
     Dosage: 1 TAB EVERY DAY PO
     Route: 048
     Dates: start: 20081120, end: 20081223

REACTIONS (2)
  - ANGIOEDEMA [None]
  - INTERNATIONAL NORMALISED RATIO ABNORMAL [None]
